FAERS Safety Report 6099863-6 (Version None)
Quarter: 2009Q1

REPORT INFORMATION
  Report Type: 
  Country: None (occurrence: None)
  Receive Date: 20090303
  Receipt Date: 20090227
  Transmission Date: 20090719
  Serious: Yes (Death)
  Sender: FDA-Public Use
  Company Number: PHHY2009AU07091

PATIENT
  Sex: Male

DRUGS (2)
  1. CLOZARIL [Suspect]
     Dosage: UNK
     Dates: start: 19940915, end: 20020601
  2. CLOZARIL [Suspect]
     Dosage: 400 MG
     Dates: start: 20030213, end: 20090130

REACTIONS (1)
  - DEATH [None]
